FAERS Safety Report 24740280 (Version 3)
Quarter: 2025Q3

REPORT INFORMATION
  Report Type: Report from Study
  Country: US (occurrence: US)
  Receive Date: 20241216
  Receipt Date: 20250804
  Transmission Date: 20251020
  Serious: Yes (Life-Threatening, Hospitalization, Other)
  Sender: Haleon PLC
  Company Number: US-HALEON-2215184

PATIENT
  Sex: Male
  Weight: 2.855 kg

DRUGS (10)
  1. ADVIL [Suspect]
     Active Substance: IBUPROFEN
     Indication: Migraine
     Route: 064
  2. LIDOCAINE [Suspect]
     Active Substance: LIDOCAINE
     Indication: Migraine prophylaxis
     Dosage: 100 MCG; Q2 WEEKS
     Route: 064
     Dates: start: 20240118
  3. NURTEC ODT [Suspect]
     Active Substance: RIMEGEPANT SULFATE
     Indication: Migraine prophylaxis
     Dosage: QOD
     Route: 064
     Dates: end: 20240118
  4. NURTEC ODT [Suspect]
     Active Substance: RIMEGEPANT SULFATE
     Indication: Migraine
     Route: 064
  5. BOTOX [Suspect]
     Active Substance: ONABOTULINUMTOXINA
     Indication: Migraine prophylaxis
     Route: 064
     Dates: start: 20231016
  6. AMITRIPTYLINE [Suspect]
     Active Substance: AMITRIPTYLINE
     Indication: Migraine prophylaxis
     Dosage: 40-50 MG QD
     Route: 064
     Dates: start: 20231115
  7. PROPRANOLOL [Suspect]
     Active Substance: PROPRANOLOL HYDROCHLORIDE
     Indication: Migraine prophylaxis
     Dosage: 20-30 MG
     Route: 064
     Dates: start: 20240118
  8. TYLENOL [Suspect]
     Active Substance: ACETAMINOPHEN
     Indication: Migraine
     Route: 064
  9. FROVATRIPTAN [Suspect]
     Active Substance: FROVATRIPTAN
     Indication: Migraine
     Route: 064
  10. MAXALT [Suspect]
     Active Substance: RIZATRIPTAN BENZOATE
     Indication: Migraine
     Route: 064

REACTIONS (4)
  - Cerebral infarction [Recovering/Resolving]
  - Factor V Leiden mutation [Not Recovered/Not Resolved]
  - Peripheral artery thrombosis [Recovered/Resolved]
  - Foetal exposure during pregnancy [Unknown]

NARRATIVE: CASE EVENT DATE: 20240712
